FAERS Safety Report 8033079-9 (Version None)
Quarter: 2012Q1

REPORT INFORMATION
  Report Type: 
  Country: None (occurrence: None)
  Receive Date: 20120110
  Receipt Date: 20120103
  Transmission Date: 20120608
  Serious: Yes (Hospitalization, Other)
  Sender: FDA-Public Use
  Company Number: US-BAYER-2011-037243

PATIENT
  Age: 28 Year
  Sex: Female
  Weight: 79.819 kg

DRUGS (6)
  1. ASPIRIN [Concomitant]
     Indication: PULMONARY EMBOLISM
     Dosage: 8 MG, QD
     Route: 048
  2. FISH OIL [Concomitant]
     Dosage: 3000 MG, QD
     Route: 048
  3. XANAX [Concomitant]
     Indication: ANXIETY
     Dosage: 0.25 MG, PRN
  4. WOMEN+#8217;S DV [Concomitant]
     Dosage: UNK UNK, QD
     Route: 048
  5. FLAXSEED OIL [Concomitant]
     Dosage: 1300 MG, QD
     Route: 048
  6. YAZ [Suspect]
     Indication: CONTRACEPTION
     Dosage: UNK
     Dates: start: 20090222, end: 20090326

REACTIONS (4)
  - THROMBOSIS [None]
  - PULMONARY EMBOLISM [None]
  - PAIN [None]
  - ANXIETY [None]
